FAERS Safety Report 6006921-0 (Version None)
Quarter: 2008Q4

REPORT INFORMATION
  Report Type: 
  Country: None (occurrence: None)
  Receive Date: 20081217
  Receipt Date: 20081204
  Transmission Date: 20090506
  Serious: Yes (Hospitalization)
  Sender: FDA-Public Use
  Company Number: CH-ASTRAZENECA-2008PK02664

PATIENT
  Age: 64 Year
  Sex: Female

DRUGS (7)
  1. NEXIUM [Suspect]
     Route: 048
     Dates: end: 20081012
  2. SIMCORA [Suspect]
     Indication: HYPERCHOLESTEROLAEMIA
     Route: 048
     Dates: end: 20081012
  3. FLUCONAZOLE [Suspect]
     Route: 048
     Dates: start: 20081008, end: 20081012
  4. ACETAMINOPHEN [Concomitant]
     Dates: start: 20080923, end: 20081012
  5. TIZANIDINE HCL [Concomitant]
  6. ONDANSETRON [Concomitant]
  7. TIENAM [Concomitant]
     Route: 040

REACTIONS (1)
  - HEPATOCELLULAR INJURY [None]
